FAERS Safety Report 9035682 (Version 1)
Quarter: 2013Q1

REPORT INFORMATION
  Report Type: Report from Study
  Country: US (occurrence: US)
  Receive Date: 20130129
  Receipt Date: 20130129
  Transmission Date: 20140127
  Serious: No
  Sender: FDA-Public Use
  Company Number: US-ABBOTT-12P-163-0913000-00

PATIENT
  Age: 49 Year
  Sex: Female

DRUGS (21)
  1. HUMIRA 40 MG/ 0.8 ML PRE-FILLED SYRINGE [Suspect]
     Indication: PSORIATIC ARTHROPATHY
     Dates: start: 2007
  2. COLACE [Concomitant]
     Indication: CONSTIPATION
  3. COQ10 [Concomitant]
     Indication: VITAMIN SUPPLEMENTATION
  4. CRANBERRY [Concomitant]
     Indication: MEDICAL DIET
  5. CYTOMEL [Concomitant]
     Indication: THYROID DISORDER
  6. LASIX [Concomitant]
     Indication: FLUID RETENTION
  7. LYRICA [Concomitant]
     Indication: PAIN
  8. MYFORTIC [Concomitant]
     Indication: PRODUCT USED FOR UNKNOWN INDICATION
  9. NOVALOG [Concomitant]
     Indication: DIABETES MELLITUS
  10. OMEGA 3 [Concomitant]
     Indication: MEDICAL DIET
  11. PRAVASTATIN [Concomitant]
     Indication: BLOOD CHOLESTEROL INCREASED
  12. PREDNISONE [Concomitant]
     Indication: PSORIATIC ARTHROPATHY
  13. PRILOSEC [Concomitant]
     Indication: GASTROOESOPHAGEAL REFLUX DISEASE
  14. PROBIOTIC [Concomitant]
     Indication: DYSPEPSIA
  15. PROGRAF [Concomitant]
     Indication: PRODUCT USED FOR UNKNOWN INDICATION
  16. PROZAC [Concomitant]
     Indication: DEPRESSION
  17. SYNTHROID [Concomitant]
     Indication: THYROID DISORDER
  18. VALCYTE [Concomitant]
     Indication: PRODUCT USED FOR UNKNOWN INDICATION
  19. VIT B 12 [Concomitant]
     Indication: VITAMIN SUPPLEMENTATION
  20. XALATAN [Concomitant]
     Indication: GLAUCOMA
  21. ZAROXOLYN [Concomitant]
     Indication: FLUID RETENTION

REACTIONS (1)
  - Musculoskeletal stiffness [Not Recovered/Not Resolved]
